FAERS Safety Report 10678177 (Version 1)
Quarter: 2014Q4

REPORT INFORMATION
  Report Type: Spontaneous
  Country: US (occurrence: None)
  Receive Date: 20141224
  Receipt Date: 20141224
  Transmission Date: 20150529
  Serious: No
  Sender: FDA-Public Use
  Company Number: None

PATIENT
  Age: 57 Year
  Sex: Male
  Weight: 66.68 kg

DRUGS (1)
  1. AVONEX [Suspect]
     Active Substance: INTERFERON BETA-1A
     Indication: MULTIPLE SCLEROSIS
     Dosage: STRENGTH: 30MCG, ROUTE: INTRAMUSCULAR 030, DOSE FORM: INJECTABLE, FREQUENCY: WEEKLY?
     Route: 030
     Dates: start: 20141206

REACTIONS (1)
  - Acne [None]

NARRATIVE: CASE EVENT DATE: 20141217
